FAERS Safety Report 19380587 (Version 3)
Quarter: 2021Q3

REPORT INFORMATION
  Report Type: Other
  Country: US (occurrence: US)
  Receive Date: 20210607
  Receipt Date: 20210901
  Transmission Date: 20211014
  Serious: Yes (Other)
  Sender: FDA-Public Use
  Company Number: US-ROCHE-2840039

PATIENT
  Age: 71 Year
  Sex: Male
  Weight: 70.82 kg

DRUGS (24)
  1. OCREVUS [Suspect]
     Active Substance: OCRELIZUMAB
     Indication: RELAPSING MULTIPLE SCLEROSIS
     Dosage: DATE OF TREATMENT: 14/MAR/2019, 12/NOV/2019, 01/JUN/2020, 23/DEC/2020
     Route: 042
     Dates: start: 20190228
  2. CICLOPIROX. [Concomitant]
     Active Substance: CICLOPIROX
     Dosage: TOPICAL SOLUTION
  3. HYDROCORTISONE ACETATE. [Concomitant]
     Active Substance: HYDROCORTISONE ACETATE
     Route: 054
  4. METRONIDAZOLE. [Concomitant]
     Active Substance: METRONIDAZOLE
  5. ONDANSETRON [Concomitant]
     Active Substance: ONDANSETRON
     Dosage: UNDER TONGUE
  6. TROKENDI XR [Concomitant]
     Active Substance: TOPIRAMATE
  7. COVID?19 VACCINE [Concomitant]
  8. BENADRYL [Concomitant]
     Active Substance: DIPHENHYDRAMINE HYDROCHLORIDE
     Route: 048
  9. DEXTROAMPHETAMINE. [Concomitant]
     Active Substance: DEXTROAMPHETAMINE
     Dosage: ER
  10. GEMTESA [Concomitant]
     Active Substance: VIBEGRON
  11. OLANZAPINE. [Concomitant]
     Active Substance: OLANZAPINE
     Route: 048
  12. ATORVASTATIN [Concomitant]
     Active Substance: ATORVASTATIN
  13. BUTALBITAL, ACETAMINOPHEN, AND CAFFEINE [Concomitant]
     Active Substance: ACETAMINOPHEN\BUTALBITAL\CAFFEINE
     Dosage: 50 MG? 325MG? 40MG
  14. CIPROFLOXACIN. [Concomitant]
     Active Substance: CIPROFLOXACIN
  15. AMLODIPINE [Concomitant]
     Active Substance: AMLODIPINE BESYLATE
     Route: 048
  16. METHYLPREDNISOLONE SODIUM SUCCINATE. [Concomitant]
     Active Substance: METHYLPREDNISOLONE SODIUM SUCCINATE
     Dosage: SOLUTION FOR INJECTION
  17. METOPROLOL TARTRATE. [Concomitant]
     Active Substance: METOPROLOL TARTRATE
     Route: 048
  18. MIRALAX [Concomitant]
     Active Substance: POLYETHYLENE GLYCOL 3350
  19. TRAMADOL. [Concomitant]
     Active Substance: TRAMADOL
     Route: 048
  20. CIPRO [Concomitant]
     Active Substance: CIPROFLOXACIN HYDROCHLORIDE
  21. LATANOPROST. [Concomitant]
     Active Substance: LATANOPROST
  22. LEVOFLOXACIN. [Concomitant]
     Active Substance: LEVOFLOXACIN
  23. OMEPRAZOLE. [Concomitant]
     Active Substance: OMEPRAZOLE
     Route: 048
  24. TRAZODONE [Concomitant]
     Active Substance: TRAZODONE HYDROCHLORIDE
     Route: 048

REACTIONS (7)
  - Hypoacusis [Unknown]
  - Haemorrhoids [Unknown]
  - Headache [Unknown]
  - Colitis ulcerative [Recovered/Resolved]
  - White blood cell count increased [Unknown]
  - Depression [Unknown]
  - Diverticulitis [Recovered/Resolved]

NARRATIVE: CASE EVENT DATE: 202104
